FAERS Safety Report 4943593-8 (Version None)
Quarter: 2006Q1

REPORT INFORMATION
  Report Type: 
  Country: None (occurrence: None)
  Receive Date: 20060310
  Receipt Date: 20060217
  Transmission Date: 20060701
  Serious: Yes (Other)
  Sender: FDA-Public Use
  Company Number: 2006BH003499

PATIENT
  Sex: Male

DRUGS (1)
  1. ADVATE (OCTOCOG ALFA) [Suspect]
     Indication: FACTOR VIII DEFICIENCY
     Dosage: IV
     Route: 042

REACTIONS (1)
  - CEREBRAL HAEMORRHAGE [None]
